APPROVED DRUG PRODUCT: HYDROXYZINE HYDROCHLORIDE
Active Ingredient: HYDROXYZINE HYDROCHLORIDE
Strength: 25MG
Dosage Form/Route: TABLET;ORAL
Application: A040562 | Product #001
Applicant: ABLE LABORATORIES INC
Approved: Jul 22, 2004 | RLD: No | RS: No | Type: DISCN